FAERS Safety Report 23929134 (Version 2)
Quarter: 2024Q3

REPORT INFORMATION
  Report Type: Spontaneous
  Country: JP (occurrence: JP)
  Receive Date: 20240601
  Receipt Date: 20240918
  Transmission Date: 20241017
  Serious: Yes (Hospitalization)
  Sender: ROCHE
  Company Number: JP-CHUGAI-2024017820

PATIENT
  Age: 71 Year
  Sex: Male
  Weight: 55 kg

DRUGS (5)
  1. ACTEMRA [Suspect]
     Active Substance: TOCILIZUMAB
     Indication: Rheumatoid arthritis
     Dosage: 162 MILLIGRAM, ONCE/2WEEKS
     Route: 058
     Dates: start: 20240403
  2. METHOTREXATE [Concomitant]
     Active Substance: METHOTREXATE
     Dosage: 6 MILLIGRAM
     Route: 048
     Dates: start: 201404, end: 202004
  3. METHOTREXATE [Concomitant]
     Active Substance: METHOTREXATE
     Dosage: 4 MILLIGRAM
     Route: 048
     Dates: start: 202004, end: 202406
  4. METHOTREXATE [Concomitant]
     Active Substance: METHOTREXATE
     Route: 048
     Dates: end: 20240611
  5. METHOTREXATE [Concomitant]
     Active Substance: METHOTREXATE
     Route: 048
     Dates: start: 20240709

REACTIONS (2)
  - Acute myocardial infarction [Recovering/Resolving]
  - Autoimmune thyroiditis [Unknown]

NARRATIVE: CASE EVENT DATE: 20240411
